FAERS Safety Report 5162456-9 (Version None)
Quarter: 2006Q4

REPORT INFORMATION
  Report Type: 
  Country: None (occurrence: None)
  Receive Date: 20061128
  Receipt Date: 20061128
  Transmission Date: 20070319
  Serious: Yes (Disabling)
  Sender: FDA-Public Use
  Company Number: None

PATIENT
  Sex: Female
  Weight: 71.2147 kg

DRUGS (1)
  1. ZOCOR [Suspect]
     Indication: BLOOD CHOLESTEROL INCREASED
     Dosage: 20 MG DAILY BY MOUTH
     Route: 048
     Dates: start: 19990101, end: 20020101

REACTIONS (3)
  - MUSCLE INJURY [None]
  - NERVE INJURY [None]
  - NEUROPATHY PERIPHERAL [None]
